FAERS Safety Report 16765641 (Version 1)
Quarter: 2019Q3

REPORT INFORMATION
  Report Type: Spontaneous
  Country: DK (occurrence: DK)
  Receive Date: 20190903
  Receipt Date: 20190903
  Transmission Date: 20191005
  Serious: Yes (Death)
  Sender: FDA-Public Use
  Company Number: DK-TEVA-2019-DK-1100838

PATIENT
  Age: 45 Year
  Sex: Female

DRUGS (11)
  1. QUETIAPINE TEVA [Suspect]
     Active Substance: QUETIAPINE
     Indication: BIPOLAR DISORDER
     Dosage: STRENGTH: 300 MG.
     Route: 048
     Dates: start: 20180823
  2. SALBUTAMOL [Concomitant]
     Active Substance: ALBUTEROL
     Indication: BRONCHOSPASM
     Dosage: STRENGTH: 200 MICROGRAMS/DOSE. DOSE: 1 PUFF PN., NOT MORE THAN 4 TIMES A DAY.
     Route: 055
     Dates: start: 20181204
  3. METFORMIN ACTAVIS [Interacting]
     Active Substance: METFORMIN HYDROCHLORIDE
     Indication: TYPE 2 DIABETES MELLITUS
     Dosage: STRENGTH: 500 MG
     Route: 048
     Dates: start: 20170721
  4. LITIUMKARBONAT OBA [Interacting]
     Active Substance: LITHIUM CARBONATE
     Indication: MOOD ALTERED
     Dosage: STYRKE: 300 MG
     Route: 048
     Dates: start: 20170720
  5. FUROSEMIDE. [Concomitant]
     Active Substance: FUROSEMIDE
     Indication: DIURETIC THERAPY
     Dosage: STRENGTH: 40 MG.
     Route: 048
     Dates: start: 20170519
  6. TRUXAL [Interacting]
     Active Substance: CHLORPROTHIXENE
     Indication: SEDATIVE THERAPY
     Dosage: STRENGTH: 25 MG. DOSE: 1 TABLET PN., MAXIMUM 3 TIMES DAILY.
     Route: 048
     Dates: start: 20170831
  7. SURLID [Interacting]
     Active Substance: ROXITHROMYCIN
     Indication: PNEUMONIA
     Dosage: STRENGTH: 150 MG
     Route: 048
     Dates: start: 20190627
  8. RELVAR ELLIPTA [Concomitant]
     Active Substance: FLUTICASONE FUROATE\VILANTEROL TRIFENATATE
     Indication: ASTHMA
     Dosage: STRENGTH 184 MICG + 22 MICG.
     Route: 055
     Dates: start: 20180618
  9. MORPHINE [Concomitant]
     Active Substance: MORPHINE
     Indication: PAIN
     Dosage: STRENGTH: 10 MG.
     Route: 048
     Dates: start: 20180822
  10. COLECALCIFEROL [Concomitant]
     Active Substance: CHOLECALCIFEROL
     Indication: SUPPLEMENTATION THERAPY
     Dosage: STRENGTH 85 MICROGRAMS.
     Route: 048
     Dates: start: 20190320
  11. PROPRANOLOL [Concomitant]
     Active Substance: PROPRANOLOL HYDROCHLORIDE
     Indication: HYPERTENSION
     Dosage: STRENGTH 160 MG.
     Route: 048
     Dates: start: 20170721

REACTIONS (6)
  - Altered state of consciousness [Fatal]
  - Drug interaction [Fatal]
  - Hyperthermia [Fatal]
  - Malaise [Fatal]
  - Multiple organ dysfunction syndrome [Fatal]
  - Dyspnoea [Fatal]

NARRATIVE: CASE EVENT DATE: 20190630
